FAERS Safety Report 9279064 (Version 2)
Quarter: 2013Q2

REPORT INFORMATION
  Report Type: Report from Study
  Country: DE (occurrence: DE)
  Receive Date: 20130508
  Receipt Date: 20130628
  Transmission Date: 20140414
  Serious: Yes (Hospitalization)
  Sender: FDA-Public Use
  Company Number: DE-BRISTOL-MYERS SQUIBB COMPANY-18844803

PATIENT
  Age: 51 Year
  Sex: Female
  Weight: 82 kg

DRUGS (6)
  1. CARBOPLATIN [Suspect]
     Indication: OVARIAN CANCER
     Dosage: RECENT DOSE 18APR13
     Route: 042
     Dates: start: 20130418, end: 20130429
  2. PACLITAXEL [Suspect]
     Indication: OVARIAN CANCER
     Dosage: RECENT DOSE 18APR13
     Route: 042
     Dates: start: 20130418, end: 20130429
  3. BEVACIZUMAB [Suspect]
     Indication: OVARIAN CANCER
     Dosage: RECENT DOSE 18APR13
     Route: 042
     Dates: start: 20130418, end: 20130429
  4. L-THYROXINE [Concomitant]
     Indication: HYPOTHYROIDISM
     Route: 048
     Dates: start: 2002
  5. ROCALTROL [Concomitant]
     Indication: HYPOPARATHYROIDISM
     Route: 048
     Dates: start: 2002
  6. DICLOFENAC [Concomitant]
     Indication: PAIN
     Dosage: 1DF=50UNITS
     Route: 048
     Dates: start: 2002

REACTIONS (1)
  - Peritonitis [Recovered/Resolved]
